FAERS Safety Report 4730880-1 (Version None)
Quarter: 2005Q3

REPORT INFORMATION
  Report Type: 
  Country: None (occurrence: None)
  Receive Date: 20050728
  Receipt Date: 20050608
  Transmission Date: 20060218
  Serious: Yes (Life-Threatening, Hospitalization)
  Sender: FDA-Public Use
  Company Number: ZICO001225

PATIENT
  Age: 48 Year
  Sex: Male
  Weight: 101.6057 kg

DRUGS (6)
  1. PRIALT [Suspect]
     Indication: PAIN
     Dosage: 3.6 MCG/DAY INTRATHECAL
     Route: 037
     Dates: start: 20050404, end: 20050415
  2. ALBUTEROL [Concomitant]
  3. CONCERTA (METHYLPHENIDATE) [Concomitant]
  4. SENOKOT [Concomitant]
  5. METHADONE (METHADONE) [Concomitant]
  6. OXYDOSE (OXYDOSE) [Concomitant]

REACTIONS (7)
  - BALANCE DISORDER [None]
  - HEADACHE [None]
  - MEMORY IMPAIRMENT [None]
  - MUSCULOSKELETAL STIFFNESS [None]
  - PSYCHOTIC DISORDER [None]
  - SUICIDE ATTEMPT [None]
  - VISUAL ACUITY REDUCED [None]
